FAERS Safety Report 11517118 (Version 1)
Quarter: 2015Q3

REPORT INFORMATION
  Report Type: Spontaneous
  Country: US (occurrence: US)
  Receive Date: 20150917
  Receipt Date: 20150917
  Transmission Date: 20151125
  Serious: No
  Sender: FDA-Public Use
  Company Number: US-ASTRAZENECA-2015SE86736

PATIENT
  Sex: Female
  Weight: 72.6 kg

DRUGS (5)
  1. PULMICORT FLEXHALER [Suspect]
     Active Substance: BUDESONIDE
     Indication: ASTHMA
     Route: 055
     Dates: start: 20150831
  2. BROVANA [Concomitant]
     Active Substance: ARFORMOTEROL TARTRATE
     Indication: DYSPNOEA
     Route: 055
  3. DESICARE [Concomitant]
     Indication: ATONIC URINARY BLADDER
  4. IPRATROPIUIM [Concomitant]
     Indication: DYSPNOEA
     Route: 055
  5. BUDESONIDE. [Suspect]
     Active Substance: BUDESONIDE
     Indication: DYSPNOEA
     Route: 045

REACTIONS (1)
  - Dyspnoea [Unknown]
